FAERS Safety Report 18355236 (Version 1)
Quarter: 2020Q4

REPORT INFORMATION
  Report Type: Spontaneous
  Country: JP (occurrence: JP)
  Receive Date: 20201007
  Receipt Date: 20201007
  Transmission Date: 20210114
  Serious: Yes (Hospitalization)
  Sender: FDA-Public Use
  Company Number: JP-ELI_LILLY_AND_COMPANY-JP202009012616

PATIENT
  Age: 56 Year
  Sex: Male

DRUGS (3)
  1. SECUKINUMAB. [Concomitant]
     Active Substance: SECUKINUMAB
     Indication: PSORIASIS
  2. BRODALUMAB [Concomitant]
     Active Substance: BRODALUMAB
     Indication: PSORIASIS
     Route: 065
  3. TALTZ [Suspect]
     Active Substance: IXEKIZUMAB
     Indication: PSORIASIS
     Route: 058

REACTIONS (2)
  - Systemic lupus erythematosus [Recovering/Resolving]
  - Interstitial lung disease [Unknown]
